FAERS Safety Report 5892709-8 (Version None)
Quarter: 2008Q3

REPORT INFORMATION
  Report Type: 
  Country: None (occurrence: None)
  Receive Date: 20080923
  Receipt Date: 20080917
  Transmission Date: 20090109
  Serious: Yes (Disabling)
  Sender: FDA-Public Use
  Company Number: PHHY2008IT10026

PATIENT
  Sex: Male

DRUGS (1)
  1. ZOMETA [Suspect]
     Indication: PARAGANGLION NEOPLASM BENIGN
     Dosage: 4 MG PER MONTH
     Route: 042
     Dates: start: 20030101

REACTIONS (2)
  - BONE PAIN [None]
  - OSTEONECROSIS [None]
